FAERS Safety Report 9546827 (Version 2)
Quarter: 2013Q4

REPORT INFORMATION
  Report Type: Spontaneous
  Country: BR (occurrence: BR)
  Receive Date: 20130924
  Receipt Date: 20131106
  Transmission Date: 20140711
  Serious: Yes (Death)
  Sender: FDA-Public Use
  Company Number: BR-BRISTOL-MYERS SQUIBB COMPANY-19422260

PATIENT
  Age: 74 Year
  Sex: Female

DRUGS (6)
  1. YERVOY [Suspect]
     Indication: METASTATIC MALIGNANT MELANOMA
     Dosage: 31JU113-C1.?21AUG13-C2
  2. ENALAPRIL [Concomitant]
     Dosage: 12/12H
  3. HCTZ [Concomitant]
     Dosage: 1DF= 25 UNITS NOS.
  4. SELOZOK [Concomitant]
     Dosage: 1DF=50 UNITS NOS
  5. AAS [Concomitant]
     Dosage: 1DF= 100 UNITS NOS.
  6. NORTRIPTYLINE [Concomitant]

REACTIONS (1)
  - Malignant neoplasm progression [Fatal]
